FAERS Safety Report 5447138-8 (Version None)
Quarter: 2007Q3

REPORT INFORMATION
  Report Type: 
  Country: None (occurrence: None)
  Receive Date: 20070910
  Receipt Date: 20070827
  Transmission Date: 20080115
  Serious: Yes (Hospitalization, Other)
  Sender: FDA-Public Use
  Company Number: CA-JNJFOC-20070701998

PATIENT
  Sex: Male
  Weight: 57 kg

DRUGS (4)
  1. REMICADE [Suspect]
     Indication: CROHN'S DISEASE
     Route: 042
  2. METHOTREXATE [Concomitant]
  3. PREDNISONE [Concomitant]
     Route: 048
  4. FOLIC ACID [Concomitant]

REACTIONS (3)
  - BLOOD BLISTER [None]
  - LARGE INTESTINE PERFORATION [None]
  - WEIGHT DECREASED [None]
